FAERS Safety Report 13843629 (Version 1)
Quarter: 2017Q3

REPORT INFORMATION
  Report Type: Spontaneous
  Country: GB (occurrence: GB)
  Receive Date: 20170808
  Receipt Date: 20170808
  Transmission Date: 20171127
  Serious: Yes (Disabling)
  Sender: FDA-Public Use
  Company Number: GB-PFIZER INC-2017339663

PATIENT
  Age: 71 Year
  Sex: Male
  Weight: 80 kg

DRUGS (7)
  1. OPTIVE [Concomitant]
     Active Substance: CARBOXYMETHYLCELLULOSE SODIUM\GLYCERIN
     Dosage: USE IN BOTH EYES AS NEEDED
     Dates: start: 20170404
  2. LANSOPRAZOLE. [Concomitant]
     Active Substance: LANSOPRAZOLE
     Dosage: TAKE ONE OR TWO ONCE DAILY
     Dates: start: 20170404
  3. CARMELLOSE [Concomitant]
     Dosage: 2 GTT, AS NEEDED
     Dates: start: 20170404
  4. ATORVASTATIN [Suspect]
     Active Substance: ATORVASTATIN
     Dosage: UNK
     Dates: start: 20151001
  5. LEVOTHYROXINE. [Concomitant]
     Active Substance: LEVOTHYROXINE
     Dosage: 125 UG, ALTERNATE DAY
     Dates: start: 20170404
  6. ELOCON [Concomitant]
     Active Substance: MOMETASONE FUROATE
     Dosage: 1 DF, 1X/DAY APPLY TO AFFECTED AREA NOCTE
     Dates: start: 20170725
  7. LEVOTHYROXINE. [Concomitant]
     Active Substance: LEVOTHYROXINE
     Dosage: 150 UG, ALTERNATE DAY
     Dates: start: 20170404

REACTIONS (2)
  - Odynophagia [Recovered/Resolved]
  - Dysphagia [Recovered/Resolved]

NARRATIVE: CASE EVENT DATE: 20170101
